FAERS Safety Report 15587900 (Version 1)
Quarter: 2018Q4

REPORT INFORMATION
  Report Type: Other
  Country: FR (occurrence: FR)
  Receive Date: 20181105
  Receipt Date: 20181105
  Transmission Date: 20190205
  Serious: Yes (Hospitalization)
  Sender: FDA-Public Use
  Company Number: FR-ARBOR PHARMACEUTICALS, LLC-FR-2018ARB001126

PATIENT
  Age: 36 Year
  Sex: Female

DRUGS (1)
  1. TRIPTODUR [Suspect]
     Active Substance: TRIPTORELIN
     Indication: BREAST CANCER
     Dosage: 1 DF, UNK
     Route: 030
     Dates: start: 20180928, end: 20180928

REACTIONS (2)
  - Headache [Not Recovered/Not Resolved]
  - Paraesthesia [Not Recovered/Not Resolved]

NARRATIVE: CASE EVENT DATE: 20180930
